FAERS Safety Report 25444483 (Version 1)
Quarter: 2025Q2

REPORT INFORMATION
  Report Type: Spontaneous
  Country: AU (occurrence: AU)
  Receive Date: 20250617
  Receipt Date: 20250617
  Transmission Date: 20250717
  Serious: Yes (Other)
  Sender: ALKEM
  Company Number: None

PATIENT
  Sex: Female

DRUGS (4)
  1. COLCHICINE [Suspect]
     Active Substance: COLCHICINE
     Indication: Product used for unknown indication
     Route: 065
  2. DEXTROAMPHETAMINE SULFATE [Suspect]
     Active Substance: DEXTROAMPHETAMINE SULFATE
     Indication: Product used for unknown indication
     Route: 065
  3. DIAZEPAM [Concomitant]
     Active Substance: DIAZEPAM
     Indication: Product used for unknown indication
     Route: 065
  4. LAMICTAL [Concomitant]
     Active Substance: LAMOTRIGINE
     Indication: Product used for unknown indication
     Route: 065

REACTIONS (43)
  - Suicidal ideation [Unknown]
  - Agitation [Unknown]
  - Anger [Unknown]
  - Asthenia [Unknown]
  - Cardiovascular symptom [Unknown]
  - Decreased appetite [Unknown]
  - Depressed mood [Unknown]
  - Disorientation [Unknown]
  - Dissociation [Unknown]
  - Dizziness [Unknown]
  - Drug intolerance [Unknown]
  - Dry mouth [Unknown]
  - Dyspnoea [Unknown]
  - Fatigue [Unknown]
  - Feeling abnormal [Unknown]
  - Flushing [Unknown]
  - Heart rate increased [Unknown]
  - Hypertension [Unknown]
  - Illusion [Unknown]
  - Initial insomnia [Unknown]
  - Insomnia [Unknown]
  - Intrusive thoughts [Unknown]
  - Irritability [Unknown]
  - Lethargy [Unknown]
  - Malaise [Unknown]
  - Mydriasis [Unknown]
  - Obsessive thoughts [Unknown]
  - Palpitations [Unknown]
  - Thirst [Unknown]
  - Vision blurred [Unknown]
  - Withdrawal syndrome [Unknown]
  - Gastrointestinal disorder [Unknown]
  - Abdominal pain upper [Unknown]
  - Diarrhoea [Unknown]
  - Nausea [Unknown]
  - Disease recurrence [Unknown]
  - Drug ineffective [Unknown]
  - Product coating issue [Unknown]
  - Product complaint [Unknown]
  - Product physical issue [Unknown]
  - Inappropriate schedule of product discontinuation [Unknown]
  - Off label use [Unknown]
  - Incorrect dose administered [Unknown]
